FAERS Safety Report 4972669-4 (Version None)
Quarter: 2006Q1

REPORT INFORMATION
  Report Type: 
  Country: None (occurrence: None)
  Receive Date: 20060216
  Receipt Date: 20030128
  Transmission Date: 20060701
  Serious: Yes (Other)
  Sender: FDA-Public Use
  Company Number: 2002IM000903

PATIENT
  Age: 66 Year
  Sex: Female
  Weight: 58.0604 kg

DRUGS (7)
  1. INTERFERON GAMMA-1B [Suspect]
     Indication: OVARIAN CANCER
     Dosage: 100 UG, TIW, SUBCUTANEOUS
     Route: 058
     Dates: start: 20020729
  2. CARBOPLATIN [Suspect]
     Indication: OVARIAN CANCER
     Dosage: 804 MG, Q3W, INTRAVENOUS
     Route: 042
     Dates: start: 20020729, end: 20021009
  3. PACLITAXEL [Suspect]
     Indication: OVARIAN CANCER
     Dosage: 282 MG, Q3W, INTRAVENOUS
     Route: 042
     Dates: start: 20020729, end: 20021009
  4. MULTIVITAMIN [Concomitant]
  5. CALCIUM GLUCONATE [Concomitant]
  6. SENOKOT [Concomitant]
  7. ACETAMINOPHEN [Concomitant]

REACTIONS (1)
  - NEUTROPENIA [None]
